FAERS Safety Report 15492537 (Version 1)
Quarter: 2018Q4

REPORT INFORMATION
  Report Type: Spontaneous
  Country: US (occurrence: US)
  Receive Date: 20181011
  Receipt Date: 20181011
  Transmission Date: 20190205
  Serious: Yes (Other)
  Sender: FDA-Public Use
  Company Number: None

PATIENT
  Age: 39 Year
  Sex: Male
  Weight: 106.14 kg

DRUGS (1)
  1. REGADENOSON INJECTION [Suspect]
     Active Substance: REGADENOSON

REACTIONS (7)
  - Insomnia [None]
  - Post procedural complication [None]
  - Anxiety [None]
  - Dizziness [None]
  - Nervousness [None]
  - Arrhythmia [None]
  - Abdominal discomfort [None]

NARRATIVE: CASE EVENT DATE: 20181002
